FAERS Safety Report 21680432 (Version 2)
Quarter: 2022Q4

REPORT INFORMATION
  Report Type: Report from Study
  Country: CN (occurrence: CN)
  Receive Date: 20221205
  Receipt Date: 20221213
  Transmission Date: 20230112
  Serious: Yes (Death)
  Sender: FDA-Public Use
  Company Number: CN-002147023-NVSC2022CN279866

PATIENT
  Age: 64 Year
  Sex: Male
  Weight: 81 kg

DRUGS (7)
  1. DABRAFENIB [Suspect]
     Active Substance: DABRAFENIB
     Indication: Thyroid cancer
     Dosage: UNK
     Route: 048
     Dates: start: 20220628
  2. TRAMETINIB [Suspect]
     Active Substance: TRAMETINIB
     Indication: Thyroid cancer
     Dosage: UNK
     Route: 048
     Dates: start: 20220628
  3. LEVOTHYROXINE [Concomitant]
     Active Substance: LEVOTHYROXINE
     Indication: Thyroid cancer
     Dosage: UNK
     Route: 065
     Dates: start: 201610
  4. OXYCODONE HYDROCHLORIDE [Concomitant]
     Active Substance: OXYCODONE HYDROCHLORIDE
     Indication: Musculoskeletal chest pain
     Dosage: UNK
     Route: 065
     Dates: start: 20221013
  5. OXYCODONE HYDROCHLORIDE [Concomitant]
     Active Substance: OXYCODONE HYDROCHLORIDE
     Indication: Back pain
  6. GABAPENTIN [Concomitant]
     Active Substance: GABAPENTIN
     Indication: Musculoskeletal chest pain
     Dosage: UNK
     Route: 065
     Dates: start: 20221014
  7. GABAPENTIN [Concomitant]
     Active Substance: GABAPENTIN
     Indication: Back pain

REACTIONS (1)
  - Death [Fatal]

NARRATIVE: CASE EVENT DATE: 20221130
